FAERS Safety Report 21381974 (Version 1)
Quarter: 2022Q3

REPORT INFORMATION
  Report Type: Spontaneous
  Country: US (occurrence: US)
  Receive Date: 20220927
  Receipt Date: 20220927
  Transmission Date: 20221026
  Serious: Yes (Death, Other)
  Sender: FDA-Public Use
  Company Number: US-TAKEDA-2022TUS067645

PATIENT
  Sex: Female
  Weight: 68 kg

DRUGS (2)
  1. LIVTENCITY [Suspect]
     Active Substance: MARIBAVIR
     Indication: Cytomegalovirus infection
     Dosage: 200 MILLIGRAM
     Route: 065
     Dates: start: 202203
  2. LIVTENCITY [Suspect]
     Active Substance: MARIBAVIR
     Indication: Lung transplant

REACTIONS (1)
  - Death [Fatal]
